FAERS Safety Report 5154139-6 (Version None)
Quarter: 2006Q4

REPORT INFORMATION
  Report Type: 
  Country: None (occurrence: None)
  Receive Date: 20061120
  Receipt Date: 20050428
  Transmission Date: 20070319
  Serious: No
  Sender: FDA-Public Use
  Company Number: CR-AVENTIS-200620843GDDC

PATIENT
  Age: 30 Year
  Sex: Female

DRUGS (3)
  1. ARAVA [Suspect]
     Indication: RHEUMATOID ARTHRITIS
     Route: 048
     Dates: start: 20030101, end: 20050318
  2. PREDNISOLONE [Suspect]
     Dates: start: 20041101
  3. TENOXICAM [Concomitant]
     Dates: start: 20041101

REACTIONS (1)
  - DRUG EXPOSURE DURING PREGNANCY [None]
